FAERS Safety Report 4761059-5 (Version None)
Quarter: 2005Q3

REPORT INFORMATION
  Report Type: 
  Country: None (occurrence: None)
  Receive Date: 20050901
  Receipt Date: 20050817
  Transmission Date: 20060218
  Serious: Yes (Hospitalization, Other)
  Sender: FDA-Public Use
  Company Number: 200508IM000424

PATIENT
  Age: 56 Year
  Sex: Female
  Weight: 67.1324 kg

DRUGS (7)
  1. INFERGEN [Suspect]
     Indication: HEPATITIS C
     Dosage: SEE IMAGE
     Route: 058
     Dates: start: 19980101
  2. INFERGEN [Suspect]
     Indication: HEPATITIS C
     Dosage: SEE IMAGE
     Route: 058
     Dates: start: 20050315
  3. PREVACID [Concomitant]
  4. REQUIP [Concomitant]
  5. RITALIN [Concomitant]
  6. MORPHINE SULFATE [Concomitant]
  7. ZOLOFT [Concomitant]

REACTIONS (14)
  - BACK PAIN [None]
  - CELLULITIS [None]
  - CLOSTRIDIAL INFECTION [None]
  - CONDITION AGGRAVATED [None]
  - FOOD AVERSION [None]
  - HALLUCINATION [None]
  - INSOMNIA [None]
  - INTERVERTEBRAL DISC DEGENERATION [None]
  - NOSOCOMIAL INFECTION [None]
  - PLATELET COUNT DECREASED [None]
  - SPINAL CORD COMPRESSION [None]
  - VOMITING [None]
  - WEIGHT DECREASED [None]
  - WHITE BLOOD CELL COUNT DECREASED [None]
